FAERS Safety Report 19299269 (Version 1)
Quarter: 2021Q2

REPORT INFORMATION
  Report Type: Spontaneous
  Country: JP (occurrence: JP)
  Receive Date: 20210524
  Receipt Date: 20210524
  Transmission Date: 20210717
  Serious: Yes (Other)
  Sender: FDA-Public Use
  Company Number: NVSC2021JP116162

PATIENT
  Age: 52 Year
  Sex: Male

DRUGS (2)
  1. PREDNISOLONE. [Concomitant]
     Active Substance: PREDNISOLONE
     Indication: AUTOIMMUNE HEPATITIS
     Dosage: 60 MG, QD, (1MG/KG)
     Route: 042
  2. CYCLOSPORINE. [Suspect]
     Active Substance: CYCLOSPORINE
     Indication: AUTOIMMUNE HEPATITIS
     Dosage: 2?5 MG/KG, QD
     Route: 042

REACTIONS (2)
  - Acute kidney injury [Recovered/Resolved]
  - Product use in unapproved indication [Unknown]
